FAERS Safety Report 7270212-0 (Version None)
Quarter: 2010Q4

REPORT INFORMATION
  Report Type: 
  Country: None (occurrence: None)
  Receive Date: 20101130
  Receipt Date: 20091203
  Transmission Date: 20110411
  Serious: Yes (Hospitalization, Other)
  Sender: FDA-Public Use
  Company Number: 2009-198561-NL

PATIENT
  Age: 36 Year
  Sex: Female
  Weight: 83.9154 kg

DRUGS (4)
  1. NUVARING [Suspect]
     Indication: CONTRACEPTION
     Dates: start: 20040108, end: 20040820
  2. NUVARING [Suspect]
     Indication: CONTRACEPTION
     Dates: start: 20050301, end: 20050801
  3. MOTRIN [Concomitant]
  4. NAPROSYN [Concomitant]

REACTIONS (2)
  - DEEP VEIN THROMBOSIS [None]
  - WEIGHT INCREASED [None]
